FAERS Safety Report 17760141 (Version 2)
Quarter: 2020Q2

REPORT INFORMATION
  Report Type: Spontaneous
  Country: AR (occurrence: AR)
  Receive Date: 20200508
  Receipt Date: 20200519
  Transmission Date: 20200714
  Serious: Yes (Other)
  Sender: FDA-Public Use
  Company Number: AR-PFIZER INC-2020184675

PATIENT
  Age: 73 Year
  Sex: Female

DRUGS (10)
  1. LEVOTIROXIN [Concomitant]
     Active Substance: LEVOTHYROXINE SODIUM
     Dosage: UNK
     Dates: start: 1970
  2. DIAMICRON [Concomitant]
     Active Substance: GLICLAZIDE
  3. XELJANZ [Suspect]
     Active Substance: TOFACITINIB CITRATE
     Indication: RHEUMATOID ARTHRITIS
     Dosage: 5 MG, 2X/DAY
     Dates: start: 20170105
  4. IBUPROFEN. [Concomitant]
     Active Substance: IBUPROFEN
     Dosage: UNK
     Dates: start: 2003
  5. CORBIS [Concomitant]
  6. ARTRAIT [METHOTREXATE SODIUM] [Concomitant]
     Dosage: UNK
     Dates: start: 2003
  7. GALVUS MET [Concomitant]
     Active Substance: METFORMIN HYDROCHLORIDE\VILDAGLIPTIN
  8. LOTOQUIS [Concomitant]
     Dosage: UNK
     Dates: start: 1985
  9. LERCADIP [LERCANIDIPINE] [Concomitant]
  10. SIMULTAN [VALSARTAN] [Concomitant]

REACTIONS (7)
  - Neoplasm [Unknown]
  - Diabetes mellitus [Not Recovered/Not Resolved]
  - Appendicitis [Unknown]
  - Uterine leiomyoma [Unknown]
  - Overweight [Not Recovered/Not Resolved]
  - Fall [Not Recovered/Not Resolved]
  - Arrhythmia [Unknown]

NARRATIVE: CASE EVENT DATE: 2017
